FAERS Safety Report 20135320 (Version 1)
Quarter: 2021Q4

REPORT INFORMATION
  Report Type: Spontaneous
  Country: KR (occurrence: KR)
  Receive Date: 20211201
  Receipt Date: 20211201
  Transmission Date: 20220303
  Serious: Yes (Other)
  Sender: FDA-Public Use
  Company Number: KR-PFIZER INC-202101645267

PATIENT

DRUGS (4)
  1. OXALIPLATIN [Suspect]
     Active Substance: OXALIPLATIN
     Indication: Pancreatic carcinoma
     Dosage: UNK, CYCLIC (FIRST-LINE CHEMOTHERAPY)
  2. FLUOROURACIL SODIUM [Concomitant]
     Active Substance: FLUOROURACIL SODIUM
     Indication: Pancreatic carcinoma
     Dosage: UNK, CYCLIC (FIRST-LINE CHEMOTHERAPY)
  3. LEUCOVORIN [Concomitant]
     Active Substance: LEUCOVORIN
     Indication: Pancreatic carcinoma
     Dosage: UNK, CYCLIC (FIRST-LINE CHEMOTHERAPY)
  4. IRINOTECAN [Concomitant]
     Active Substance: IRINOTECAN
     Indication: Pancreatic carcinoma
     Dosage: UNK, CYCLIC (FIRST-LINE CHEMOTHERAPY)

REACTIONS (1)
  - Neuropathy peripheral [Unknown]
